FAERS Safety Report 8798188 (Version 2)
Quarter: 2013Q1

REPORT INFORMATION
  Report Type: Spontaneous
  Country: US (occurrence: US)
  Receive Date: 20120920
  Receipt Date: 20130131
  Transmission Date: 20140127
  Serious: Yes (Other)
  Sender: FDA-Public Use
  Company Number: US-ASTRAZENECA-2012SE71087

PATIENT
  Age: 85 Year
  Sex: Female
  Weight: 74.8 kg

DRUGS (11)
  1. RHINOCORT AQUA [Suspect]
     Indication: ALLERGIC SINUSITIS
     Dosage: 1 PUFF EACH NOSTRIL, HS
     Route: 045
  2. RHINOCORT AQUA [Suspect]
     Indication: ALLERGIC SINUSITIS
     Dosage: 1 PUFF EACH NOSTRIL, HS
     Route: 045
  3. PRILOSEC [Suspect]
     Indication: GASTRIC DISORDER
     Route: 048
     Dates: start: 2009
  4. MARCIDS [Concomitant]
     Indication: BLOOD PRESSURE ABNORMAL
     Dosage: 80/125 MG BID
     Route: 048
     Dates: start: 2010
  5. TIMOLOL [Concomitant]
     Indication: GLAUCOMA
     Dosage: 1 GTT. OU BID
  6. CELEBREX [Concomitant]
     Indication: ARTHRITIS
     Route: 048
  7. WARFAIN [Concomitant]
     Indication: ANTICOAGULANT THERAPY
     Route: 048
     Dates: start: 2010
  8. SIMVASTATIN [Concomitant]
     Indication: BLOOD CHOLESTEROL INCREASED
     Route: 048
     Dates: start: 2010
  9. LATANOPROST [Concomitant]
     Indication: GLAUCOMA
     Dosage: 1 GTT. OU DAILY
     Route: 048
     Dates: start: 2009
  10. AMIODARONE [Concomitant]
     Indication: PALPITATIONS
     Route: 048
     Dates: start: 20120829, end: 20120903
  11. AMIODARONE [Concomitant]
     Indication: PALPITATIONS
     Route: 048
     Dates: start: 20120903

REACTIONS (4)
  - Drug hypersensitivity [Unknown]
  - Palpitations [Recovered/Resolved]
  - Dyspnoea [Recovered/Resolved]
  - Gait disturbance [Unknown]
